FAERS Safety Report 19360491 (Version 1)
Quarter: 2021Q2

REPORT INFORMATION
  Report Type: Report from Study
  Country: None (occurrence: US)
  Receive Date: 20210602
  Receipt Date: 20210602
  Transmission Date: 20210717
  Serious: No
  Sender: FDA-Public Use
  Company Number: US-MDD US OPERATIONS-USW202007-001346

PATIENT
  Age: 70 Year
  Sex: Male
  Weight: 69.39 kg

DRUGS (5)
  1. RYTARY [Concomitant]
     Active Substance: CARBIDOPA\LEVODOPA
  2. FLOMAX [Concomitant]
     Active Substance: TAMSULOSIN HYDROCHLORIDE
  3. APOKYN [Suspect]
     Active Substance: APOMORPHINE HYDROCHLORIDE
     Indication: PARKINSON^S DISEASE
     Route: 058
     Dates: start: 20200630
  4. AZILECT [Concomitant]
     Active Substance: RASAGILINE MESYLATE
  5. ENTACAPONE. [Concomitant]
     Active Substance: ENTACAPONE

REACTIONS (4)
  - Feeling hot [Recovering/Resolving]
  - Nausea [Recovering/Resolving]
  - Balance disorder [Recovering/Resolving]
  - Malaise [Recovering/Resolving]

NARRATIVE: CASE EVENT DATE: 20200630
